APPROVED DRUG PRODUCT: DIMETHYL SULFOXIDE
Active Ingredient: DIMETHYL SULFOXIDE
Strength: 50%
Dosage Form/Route: SOLUTION;INTRAVESICAL
Application: A076185 | Product #001
Applicant: MYLAN INSTITUTIONAL LLC
Approved: Nov 29, 2002 | RLD: No | RS: No | Type: DISCN